FAERS Safety Report 6289120-7 (Version None)
Quarter: 2009Q3

REPORT INFORMATION
  Report Type: 
  Country: None (occurrence: None)
  Receive Date: 20090729
  Receipt Date: 20090717
  Transmission Date: 20100115
  Serious: Yes (Hospitalization)
  Sender: FDA-Public Use
  Company Number: JP-ASTRAZENECA-2009SE04355

PATIENT
  Age: 23905 Day
  Sex: Female
  Weight: 45 kg

DRUGS (9)
  1. SEROQUEL [Suspect]
     Indication: SEDATION
     Route: 048
     Dates: start: 20090109, end: 20090114
  2. SEROQUEL [Suspect]
     Route: 048
     Dates: start: 20090114, end: 20090128
  3. VEGETAMIN A [Suspect]
     Indication: INSOMNIA
     Route: 048
     Dates: start: 20090107, end: 20090128
  4. RESLIN [Concomitant]
     Dates: start: 20081222
  5. HIRNAMIN [Concomitant]
     Dates: start: 20081222
  6. BENZALIN [Concomitant]
     Dates: start: 20081222
  7. EURODIN [Concomitant]
     Dates: start: 20090107
  8. MAGLAX [Concomitant]
     Dates: start: 20090107
  9. VEGETAMIN B [Concomitant]

REACTIONS (1)
  - LIVER DISORDER [None]
